FAERS Safety Report 5491092-X (Version None)
Quarter: 2007Q4

REPORT INFORMATION
  Report Type: 
  Country: None (occurrence: None)
  Receive Date: 20071019
  Receipt Date: 20071008
  Transmission Date: 20080405
  Serious: Yes (Other)
  Sender: FDA-Public Use
  Company Number: BR-PFIZER INC-2007059973

PATIENT
  Sex: Male
  Weight: 85 kg

DRUGS (5)
  1. DOSTINEX [Suspect]
     Indication: PROLACTINOMA
     Route: 048
     Dates: start: 20070401, end: 20070601
  2. VYTORIN [Concomitant]
     Indication: BLOOD CHOLESTEROL INCREASED
     Route: 048
  3. DOXAZOSIN MESYLATE [Concomitant]
     Indication: BENIGN PROSTATIC HYPERPLASIA
     Route: 048
  4. CALTRATE [Concomitant]
     Indication: OSTEOPENIA
     Dosage: DAILY DOSE:600MG
     Route: 048
  5. FOSAMAX [Concomitant]
     Indication: OSTEOPENIA
     Route: 048

REACTIONS (2)
  - ADENOMA BENIGN [None]
  - VISUAL DISTURBANCE [None]
